FAERS Safety Report 19902591 (Version 5)
Quarter: 2022Q1

REPORT INFORMATION
  Report Type: Spontaneous
  Country: ES (occurrence: ES)
  Receive Date: 20210930
  Receipt Date: 20220103
  Transmission Date: 20220423
  Serious: Yes (Death, Hospitalization, Other)
  Sender: FDA-Public Use
  Company Number: ES-BRISTOL-MYERS SQUIBB COMPANY-BMS-2021-099457

PATIENT
  Age: 66 Year
  Sex: Male

DRUGS (3)
  1. ORENCIA [Suspect]
     Active Substance: ABATACEPT
     Indication: Rheumatoid arthritis
     Dosage: 125 MILLIGRAM, QWK
     Route: 058
     Dates: start: 202101, end: 202109
  2. PREDNISONE [Concomitant]
     Active Substance: PREDNISONE
     Indication: Rhinitis
     Dosage: 60 MILLIGRAM, QD
     Route: 065
     Dates: start: 20210802
  3. PREDNISONE [Concomitant]
     Active Substance: PREDNISONE
     Indication: Alveolitis

REACTIONS (5)
  - Pulmonary alveolar haemorrhage [Recovering/Resolving]
  - Petechiae [Recovering/Resolving]
  - Bronchiectasis [Unknown]
  - Interstitial lung disease [Fatal]
  - Pulmonary fibrosis [Fatal]

NARRATIVE: CASE EVENT DATE: 20210720
